FAERS Safety Report 14410838 (Version 10)
Quarter: 2018Q4

REPORT INFORMATION
  Report Type: Report from Study
  Country: FR (occurrence: FR)
  Receive Date: 20180119
  Receipt Date: 20181206
  Transmission Date: 20190204
  Serious: Yes (Death, Disabling, Other)
  Sender: FDA-Public Use
  Company Number: FR-PFIZER INC-2017211819

PATIENT
  Age: 64 Year
  Sex: Male
  Weight: 90 kg

DRUGS (5)
  1. SANDOSTATIN [Concomitant]
     Active Substance: OCTREOTIDE ACETATE
     Indication: NEUROENDOCRINE TUMOUR
     Dosage: 30 MG, MONTHLY (ONCE IN 28 DAYS)
     Route: 030
     Dates: start: 20150813
  2. SUTENT [Suspect]
     Active Substance: SUNITINIB MALATE
     Indication: PANCREATIC NEUROENDOCRINE TUMOUR
     Dosage: 25 MG, 1X/DAY
     Dates: start: 20150813
  3. SUTENT [Suspect]
     Active Substance: SUNITINIB MALATE
     Dosage: 37.5 MG, DAILY
     Dates: start: 20160425, end: 20170903
  4. CREON [Concomitant]
     Active Substance: PANCRELIPASE AMYLASE\PANCRELIPASE LIPASE\PANCRELIPASE PROTEASE
     Indication: PROPHYLAXIS
     Dosage: UNK
     Route: 048
     Dates: start: 20150813
  5. AFINITOR [Suspect]
     Active Substance: EVEROLIMUS
     Indication: PANCREATIC NEUROENDOCRINE TUMOUR
     Dosage: 10 MG, DAILY
     Dates: start: 20170904, end: 20170910

REACTIONS (15)
  - Mucosal inflammation [Recovered/Resolved]
  - Hair colour changes [Not Recovered/Not Resolved]
  - Diarrhoea [Recovered/Resolved]
  - Liver function test abnormal [Not Recovered/Not Resolved]
  - Erythema [Recovered/Resolved]
  - Acute kidney injury [Fatal]
  - Urticaria [Recovered/Resolved]
  - Hepatocellular injury [Recovering/Resolving]
  - Skin depigmentation [Recovered/Resolved]
  - Periorbital oedema [Recovered/Resolved]
  - Lymphopenia [Recovered/Resolved]
  - Oedema [Recovered/Resolved]
  - Erythema [Recovered/Resolved]
  - Thrombocytopenia [Recovered/Resolved]
  - Macrocytosis [Recovered/Resolved]

NARRATIVE: CASE EVENT DATE: 201508
